FAERS Safety Report 8029334-9 (Version None)
Quarter: 2012Q1

REPORT INFORMATION
  Report Type: 
  Country: None (occurrence: None)
  Receive Date: 20120106
  Receipt Date: 20120102
  Transmission Date: 20120608
  Serious: Yes (Life-Threatening)
  Sender: FDA-Public Use
  Company Number: US-ASTRAZENECA-2012SE00208

PATIENT
  Age: 61 Year
  Sex: Male

DRUGS (2)
  1. ZOLPIDEM [Suspect]
  2. QUETIAPINE [Suspect]
     Route: 048

REACTIONS (3)
  - SUICIDE ATTEMPT [None]
  - OVERDOSE [None]
  - ELECTROCARDIOGRAM ABNORMAL [None]
